FAERS Safety Report 4706446-6 (Version None)
Quarter: 2005Q2

REPORT INFORMATION
  Report Type: 
  Country: None (occurrence: None)
  Receive Date: 20050629
  Receipt Date: 20050405
  Transmission Date: 20051028
  Serious: No
  Sender: FDA-Public Use
  Company Number: 05P-163-0296311-00

PATIENT
  Age: 55 Year
  Sex: Male
  Weight: 78.4723 kg

DRUGS (7)
  1. HUMIRA [Suspect]
     Indication: RHEUMATOID ARTHRITIS
     Dosage: 40 MG, SUBCUTANEOUS
     Route: 058
     Dates: start: 20050401
  2. RANITIDINE HYDROCHLORIDE [Concomitant]
  3. OMEPRAZOLE [Concomitant]
  4. AMITRIPTYLINE HCL [Concomitant]
  5. GLUCOPHAGE [Concomitant]
  6. GLIPIZIDE [Concomitant]
  7. ESTROGEN NOS [Concomitant]

REACTIONS (1)
  - PRESCRIBED OVERDOSE [None]
